FAERS Safety Report 12091258 (Version 1)
Quarter: 2016Q1

REPORT INFORMATION
  Report Type: Other
  Country: IT (occurrence: IT)
  Receive Date: 20160218
  Receipt Date: 20160218
  Transmission Date: 20160526
  Serious: Yes (Life-Threatening)
  Sender: FDA-Public Use
  Company Number: IT-MYLANLABS-2016M1006021

PATIENT

DRUGS (2)
  1. CYRAMZA [Concomitant]
     Active Substance: RAMUCIRUMAB
     Indication: ADENOCARCINOMA GASTRIC
     Dosage: 8 MG/KG, UNK
     Route: 042
     Dates: start: 20151230, end: 20160128
  2. PACLITAXEL MYLAN [Suspect]
     Active Substance: PACLITAXEL
     Indication: ADENOCARCINOMA GASTRIC
     Dosage: 80 MG/M2, CYCLE
     Route: 042
     Dates: start: 20151125, end: 20160128

REACTIONS (3)
  - Dysphonia [Recovered/Resolved]
  - Flushing [Recovered/Resolved]
  - Suffocation feeling [Recovered/Resolved]

NARRATIVE: CASE EVENT DATE: 20160128
